FAERS Safety Report 24276175 (Version 2)
Quarter: 2024Q4

REPORT INFORMATION
  Report Type: Report from Study
  Country: CO (occurrence: CO)
  Receive Date: 20240903
  Receipt Date: 20241003
  Transmission Date: 20250114
  Serious: Yes (Life-Threatening, Hospitalization)
  Sender: ROCHE
  Company Number: CO-002147023-NVSC2024CO164619

PATIENT
  Sex: Male
  Weight: 36.7 kg

DRUGS (6)
  1. XOLAIR [Suspect]
     Active Substance: OMALIZUMAB
     Indication: Asthma
     Dosage: 375 MG, BIW
     Route: 050
     Dates: start: 20240805, end: 20240820
  2. TIOTROPIUM BROMIDE [Concomitant]
     Active Substance: TIOTROPIUM BROMIDE
     Indication: Asthma
     Dosage: 2 DOSAGE FORM (PUFF), Q24H
     Route: 050
  3. BUDESONIDE [Concomitant]
     Active Substance: BUDESONIDE
     Indication: Asthma
     Dosage: 2 DOSAGE FORM (2 PUFF, ONE IN THE MORNING AND ONE IN THE AFTERNNOON)
     Route: 050
  4. AZELASTINE [Concomitant]
     Active Substance: AZELASTINE
     Indication: Asthma
     Dosage: UNK, Q12H
     Route: 065
  5. BILASTINE [Concomitant]
     Active Substance: BILASTINE
     Indication: Hypersensitivity
     Dosage: UNK, Q12H
     Route: 050
  6. MELATONIN [Concomitant]
     Active Substance: MELATONIN
     Indication: Sleep disorder
     Dosage: UNK, Q24H
     Route: 050

REACTIONS (9)
  - Pyrexia [Recovered/Resolved]
  - Headache [Recovered/Resolved]
  - Puncture site pain [Recovered/Resolved]
  - Dizziness [Recovered/Resolved]
  - Mood altered [Recovered/Resolved]
  - Productive cough [Recovered/Resolved]
  - Pallor [Recovered/Resolved]
  - Product prescribing error [Unknown]
  - Illness [Unknown]

NARRATIVE: CASE EVENT DATE: 20240805
